FAERS Safety Report 6190912-3 (Version None)
Quarter: 2009Q2

REPORT INFORMATION
  Report Type: 
  Country: None (occurrence: None)
  Receive Date: 20090513
  Receipt Date: 20090506
  Transmission Date: 20091009
  Serious: Yes (Other)
  Sender: FDA-Public Use
  Company Number: 2009SP002417

PATIENT

DRUGS (1)
  1. TEMODAL [Suspect]
     Indication: ANAPLASTIC ASTROCYTOMA
     Dosage: 110 MG/M2; PO
     Route: 048
     Dates: start: 20081118, end: 20081215

REACTIONS (2)
  - PNEUMONIA [None]
  - RENAL FAILURE [None]
